FAERS Safety Report 7263330-4 (Version None)
Quarter: 2011Q1

REPORT INFORMATION
  Report Type: 
  Country: None (occurrence: None)
  Receive Date: 20110130
  Receipt Date: 20100929
  Transmission Date: 20110831
  Serious: No
  Sender: FDA-Public Use
  Company Number: US-ABBOTT-10P-163-0675997-00

PATIENT
  Sex: Female
  Weight: 90.8 kg

DRUGS (5)
  1. FLEXERIL [Concomitant]
     Indication: FIBROMYALGIA
  2. CLONAZEPAM [Concomitant]
     Indication: PRODUCT USED FOR UNKNOWN INDICATION
  3. HUMIRA [Suspect]
     Indication: RHEUMATOID ARTHRITIS
     Route: 058
     Dates: start: 20070501
  4. PERCOCET [Concomitant]
     Indication: FIBROMYALGIA
  5. CITALOPRAM [Concomitant]
     Indication: PRODUCT USED FOR UNKNOWN INDICATION

REACTIONS (1)
  - URINARY TRACT INFECTION [None]
